FAERS Safety Report 8822127 (Version 3)
Quarter: 2012Q4

REPORT INFORMATION
  Report Type: 
  Country: FR (occurrence: FR)
  Receive Date: 20121003
  Receipt Date: 20121031
  Transmission Date: 20130627
  Serious: No
  Sender: FDA-Public Use
  Company Number: FR-JNJFOC-20120908966

PATIENT
  Sex: Female

DRUGS (6)
  1. DUROGESIC [Suspect]
     Indication: SCIATICA
     Route: 062
  2. DUROGESIC [Suspect]
     Indication: SCIATICA
     Route: 062
  3. DUROGESIC [Suspect]
     Indication: OSTEOARTHRITIS
     Route: 062
  4. DUROGESIC [Suspect]
     Indication: OSTEOARTHRITIS
     Route: 062
  5. DUROGESIC [Suspect]
     Indication: PAIN
     Route: 062
  6. DUROGESIC [Suspect]
     Indication: PAIN
     Route: 062

REACTIONS (5)
  - Product quality issue [Unknown]
  - Wrong technique in drug usage process [Unknown]
  - Pain [Unknown]
  - Hyperhidrosis [Unknown]
  - Weight decreased [Unknown]
